FAERS Safety Report 12901191 (Version 2)
Quarter: 2016Q4

REPORT INFORMATION
  Report Type: Spontaneous
  Country: FR (occurrence: FR)
  Receive Date: 20161101
  Receipt Date: 20161107
  Transmission Date: 20170207
  Serious: Yes (Death, Hospitalization, Other)
  Sender: FDA-Public Use
  Company Number: FR-GILEAD-2016-0240422

PATIENT
  Age: 55 Year
  Sex: Female
  Weight: 54 kg

DRUGS (7)
  1. AOTAL [Concomitant]
     Active Substance: ACAMPROSATE CALCIUM
  2. STRESAM [Concomitant]
     Active Substance: ETIFOXINE
  3. ACAMPROSATE [Concomitant]
     Active Substance: ACAMPROSATE
  4. SOFOSBUVIR [Suspect]
     Active Substance: SOFOSBUVIR
     Indication: HEPATITIS C VIRUS TEST POSITIVE
     Dosage: 400 UNKNOWN, UNK
     Route: 048
     Dates: start: 20160906, end: 20161023
  5. NOCTAMIDE [Concomitant]
     Active Substance: LORMETAZEPAM
  6. RIBAVIRIN. [Concomitant]
     Active Substance: RIBAVIRIN
     Indication: HEPATITIS C VIRUS TEST POSITIVE
     Dosage: UNK
     Route: 065
     Dates: start: 20160906
  7. PAROXETINE. [Concomitant]
     Active Substance: PAROXETINE

REACTIONS (13)
  - Death [Fatal]
  - Electrocardiogram ST segment elevation [Not Recovered/Not Resolved]
  - Cerebrovascular accident [Fatal]
  - Rhabdomyolysis [Not Recovered/Not Resolved]
  - Mutism [Not Recovered/Not Resolved]
  - Toxicity to various agents [Not Recovered/Not Resolved]
  - Cardiac disorder [Not Recovered/Not Resolved]
  - Multiple organ dysfunction syndrome [Not Recovered/Not Resolved]
  - Fall [Not Recovered/Not Resolved]
  - Malaise [Fatal]
  - Syncope [Not Recovered/Not Resolved]
  - Electrocardiogram repolarisation abnormality [Not Recovered/Not Resolved]
  - Somnolence [Not Recovered/Not Resolved]

NARRATIVE: CASE EVENT DATE: 2016
